FAERS Safety Report 13916681 (Version 4)
Quarter: 2017Q3

REPORT INFORMATION
  Report Type: Spontaneous
  Country: IN (occurrence: IN)
  Receive Date: 20170829
  Receipt Date: 20170918
  Transmission Date: 20171127
  Serious: Yes (Life-Threatening, Other)
  Sender: FDA-Public Use
  Company Number: IN-ABBVIE-17P-078-2081979-00

PATIENT
  Age: 37 Year
  Sex: Male

DRUGS (2)
  1. SODIUM VALPROATE [Suspect]
     Active Substance: VALPROATE SODIUM
     Indication: PRODUCT USED FOR UNKNOWN INDICATION
     Route: 065
  2. AMITRIPTYLINE [Suspect]
     Active Substance: AMITRIPTYLINE
     Indication: MIGRAINE
     Route: 065

REACTIONS (8)
  - Sleep disorder [Recovered/Resolved]
  - Serotonin syndrome [Unknown]
  - Clonus [Recovered/Resolved]
  - Restlessness [Recovered/Resolved]
  - Drug interaction [Unknown]
  - Postural tremor [Recovered/Resolved]
  - Intention tremor [Recovered/Resolved]
  - Hypertonia [Recovered/Resolved]
